FAERS Safety Report 7602566 (Version 3)
Quarter: 2014Q1

REPORT INFORMATION
  Report Type: Spontaneous
  Country: US (occurrence: US)
  Receive Date: 20100923
  Receipt Date: 20140103
  Transmission Date: 20141002
  Serious: Yes (Hospitalization, Other)
  Sender: FDA-Public Use
  Company Number: US-BAYER-201034296NA

PATIENT
  Age: 20 Year
  Sex: Female
  Weight: 70 kg

DRUGS (9)
  1. YASMIN [Suspect]
     Indication: CONTRACEPTION
     Dosage: 1 TAB / DAY
     Route: 048
     Dates: start: 2004, end: 20090809
  2. OCELLA [Suspect]
     Indication: CONTRACEPTION
     Dosage: 1 TAB / DAY
     Dates: start: 200401, end: 20090809
  3. YAZ [Suspect]
     Indication: CONTRACEPTION
     Dosage: 1 TAB / DAY
  4. ALBUTEROL [Concomitant]
     Indication: ASTHMA
     Dosage: UNK
     Route: 045
     Dates: start: 1995
  5. ACIPHEX [Concomitant]
     Indication: GASTROOESOPHAGEAL REFLUX DISEASE
     Dosage: UNK
     Route: 048
     Dates: start: 2006
  6. ADVAIR [Concomitant]
     Dosage: 500/50MG
     Route: 045
  7. PROTONIX [Concomitant]
     Dosage: DAILY DOSE 40 MG
     Route: 048
  8. PHENERGAN [Concomitant]
  9. VICODIN [Concomitant]

REACTIONS (8)
  - Cholecystitis chronic [None]
  - Gallbladder injury [Unknown]
  - Biliary dyskinesia [Not Recovered/Not Resolved]
  - Cholelithiasis [None]
  - Abdominal pain [Not Recovered/Not Resolved]
  - Vomiting [Not Recovered/Not Resolved]
  - Nausea [Not Recovered/Not Resolved]
  - Diarrhoea [Not Recovered/Not Resolved]
